FAERS Safety Report 9510297 (Version 1)
Quarter: 2013Q3

REPORT INFORMATION
  Report Type: Spontaneous
  Country: US (occurrence: US)
  Receive Date: 20130909
  Receipt Date: 20130909
  Transmission Date: 20140515
  Serious: No
  Sender: FDA-Public Use
  Company Number: US-BRISTOL-MYERS SQUIBB COMPANY-18748947

PATIENT
  Age: 4 Decade
  Sex: Female

DRUGS (1)
  1. ABILIFY [Suspect]
     Indication: OBSESSIVE-COMPULSIVE DISORDER

REACTIONS (2)
  - Anxiety [Not Recovered/Not Resolved]
  - Weight increased [Recovering/Resolving]
